FAERS Safety Report 22536529 (Version 1)
Quarter: 2023Q2

REPORT INFORMATION
  Report Type: Spontaneous
  Country: GB (occurrence: GB)
  Receive Date: 20230608
  Receipt Date: 20230608
  Transmission Date: 20230722
  Serious: Yes (Other)
  Sender: FDA-Public Use
  Company Number: None

PATIENT
  Sex: Female

DRUGS (4)
  1. ONDANSETRON [Suspect]
     Active Substance: ONDANSETRON
     Indication: Product used for unknown indication
     Dosage: 4MG TABLETS FOUR TIMES A DAY FOR 7 DAYS
  2. CODEINE [Concomitant]
     Active Substance: CODEINE
     Dosage: 30MG QDS FOR 7 DAYS
  3. FLUOXETINE [Concomitant]
     Active Substance: FLUOXETINE HYDROCHLORIDE
     Dosage: 20MG CAPSULES 1 CAPSULE EVERY MORNING - ONLY REGULAR MED
  4. ACETAMINOPHEN [Concomitant]
     Active Substance: ACETAMINOPHEN
     Dosage: 500MG TABLETS 1000MG FOUR TIMES A DAY FOR 7 DAYS

REACTIONS (2)
  - Paraesthesia [Recovered/Resolved]
  - Muscle twitching [Recovered/Resolved]
